FAERS Safety Report 24363225 (Version 1)
Quarter: 2024Q3

REPORT INFORMATION
  Report Type: Spontaneous
  Country: US (occurrence: None)
  Receive Date: 20240925
  Receipt Date: 20240925
  Transmission Date: 20241017
  Serious: Yes (Death)
  Sender: Public
  Company Number: None

PATIENT
  Age: 21 Year
  Sex: Female
  Weight: 45 kg

DRUGS (1)
  1. YESCARTA [Suspect]
     Active Substance: AXICABTAGENE CILOLEUCEL
     Dosage: 68 ML MILLILITRE (S)
     Dates: start: 20240715, end: 20240715

REACTIONS (2)
  - Tracheal stenosis [None]
  - Cardio-respiratory arrest [None]

NARRATIVE: CASE EVENT DATE: 20240919
